FAERS Safety Report 22787732 (Version 4)
Quarter: 2023Q4

REPORT INFORMATION
  Report Type: Spontaneous
  Country: US (occurrence: US)
  Receive Date: 20230804
  Receipt Date: 20231016
  Transmission Date: 20240109
  Serious: Yes (Hospitalization, Other)
  Sender: FDA-Public Use
  Company Number: US202307007843

PATIENT
  Age: 70 Year
  Sex: Female
  Weight: 76.64 kg

DRUGS (9)
  1. BENDAMUSTINE HYDROCHLORIDE [Suspect]
     Active Substance: BENDAMUSTINE HYDROCHLORIDE
     Indication: Chronic lymphocytic leukaemia
     Dosage: 130 MG (70 MG/M2), CYCLE 1 BR THERAPY
     Route: 065
     Dates: start: 20230405
  2. BENDAMUSTINE HYDROCHLORIDE [Suspect]
     Active Substance: BENDAMUSTINE HYDROCHLORIDE
     Dosage: 86 MG (50 MG/M2), CYCLE 2 BR THERAPY
     Route: 065
     Dates: start: 20230504
  3. RITUXIMAB [Concomitant]
     Active Substance: RITUXIMAB
     Indication: Chronic lymphocytic leukaemia
     Dosage: 701 MG (375 MG/M2), CYCLE 1 BR THERAPY
     Route: 065
     Dates: start: 20230405
  4. RITUXIMAB [Concomitant]
     Active Substance: RITUXIMAB
     Dosage: 860 MG (500 MG/M2), CYCLE 2 BR THERAPY
     Route: 065
     Dates: start: 20230503
  5. ACETAMINOPHEN [Concomitant]
     Active Substance: ACETAMINOPHEN
     Indication: Pain
     Dosage: UNK
     Route: 065
     Dates: start: 2023
  6. VITAMINS [Concomitant]
     Active Substance: VITAMINS
     Indication: Supplementation therapy
     Dosage: UNK
     Route: 065
     Dates: start: 2023
  7. SIMVASTATIN [Concomitant]
     Active Substance: SIMVASTATIN
     Indication: Hypercholesterolaemia
     Dosage: UNK
     Route: 065
     Dates: start: 2023
  8. ENALAPRIL [Concomitant]
     Active Substance: ENALAPRIL
     Indication: Hypertension
     Dosage: UNK
     Route: 065
     Dates: start: 2023
  9. AMLODIPINE [Concomitant]
     Active Substance: AMLODIPINE BESYLATE
     Indication: Hypertension
     Dosage: UNK
     Route: 065
     Dates: start: 2023

REACTIONS (2)
  - Vulval abscess [Recovered/Resolved]
  - Leukopenia [Recovered/Resolved]

NARRATIVE: CASE EVENT DATE: 20230711
